FAERS Safety Report 10423815 (Version 1)
Quarter: 2014Q3

REPORT INFORMATION
  Report Type: Spontaneous
  Country: BR (occurrence: BR)
  Receive Date: 20140902
  Receipt Date: 20140902
  Transmission Date: 20150326
  Serious: Yes (Other)
  Sender: FDA-Public Use
  Company Number: BR-SA-2014SA116717

PATIENT
  Sex: Female

DRUGS (2)
  1. NITROFURANTOIN. [Suspect]
     Active Substance: NITROFURANTOIN
     Indication: PRODUCT USED FOR UNKNOWN INDICATION
     Route: 065
  2. WINTOMYLON [Suspect]
     Active Substance: NALIDIXIC ACID
     Indication: RHEUMATOID ARTHRITIS
     Route: 065
     Dates: start: 201408

REACTIONS (5)
  - Haematochezia [Not Recovered/Not Resolved]
  - Abdominal pain [Not Recovered/Not Resolved]
  - Drug interaction [Unknown]
  - Off label use [Unknown]
  - Malaise [Not Recovered/Not Resolved]
